FAERS Safety Report 6063741-9 (Version None)
Quarter: 2009Q1

REPORT INFORMATION
  Report Type: 
  Country: None (occurrence: None)
  Receive Date: 20090204
  Receipt Date: 20090122
  Transmission Date: 20090719
  Serious: Yes (Hospitalization)
  Sender: FDA-Public Use
  Company Number: GB-RANBAXY-2009RR-21405

PATIENT
  Age: 71 Year
  Sex: Male

DRUGS (1)
  1. AMOXICILLIN + CLAVULANATE POTASSIUM [Suspect]
     Dosage: UNK
     Route: 048
     Dates: start: 20090109, end: 20090112

REACTIONS (3)
  - OEDEMA PERIPHERAL [None]
  - RASH [None]
  - STEVENS-JOHNSON SYNDROME [None]
